FAERS Safety Report 24307160 (Version 1)
Quarter: 2024Q3

REPORT INFORMATION
  Report Type: Report from Study
  Country: CA (occurrence: CA)
  Receive Date: 20240911
  Receipt Date: 20240911
  Transmission Date: 20241017
  Serious: Yes (Other)
  Sender: ABBVIE
  Company Number: CA-ABBVIE-5910508

PATIENT
  Sex: Female

DRUGS (1)
  1. RINVOQ [Suspect]
     Active Substance: UPADACITINIB
     Indication: Psoriatic arthropathy
     Dosage: FORM STRENGTH:15 MILLIGRAM
     Route: 048
     Dates: start: 20221129, end: 202408

REACTIONS (4)
  - Osteoarthritis [Unknown]
  - Musculoskeletal disorder [Unknown]
  - Wrist fracture [Unknown]
  - Fall [Unknown]
